FAERS Safety Report 25877295 (Version 1)
Quarter: 2025Q4

REPORT INFORMATION
  Report Type: Spontaneous
  Country: IL (occurrence: IL)
  Receive Date: 20251003
  Receipt Date: 20251003
  Transmission Date: 20260118
  Serious: Yes (Life-Threatening, Hospitalization)
  Sender: MYLAN
  Company Number: IL-MYLANLABS-2025M1083242

PATIENT
  Sex: Male

DRUGS (68)
  1. AMLODIPINE [Suspect]
     Active Substance: AMLODIPINE BESYLATE
     Indication: Hypertension
     Dosage: UNK (GIVEN AT DOSES HIGHER THAN STANDARD RECOMMENDATIONS))
  2. AMLODIPINE [Suspect]
     Active Substance: AMLODIPINE BESYLATE
     Dosage: UNK (GIVEN AT DOSES HIGHER THAN STANDARD RECOMMENDATIONS))
     Route: 048
  3. AMLODIPINE [Suspect]
     Active Substance: AMLODIPINE BESYLATE
     Dosage: UNK (GIVEN AT DOSES HIGHER THAN STANDARD RECOMMENDATIONS))
     Route: 048
  4. AMLODIPINE [Suspect]
     Active Substance: AMLODIPINE BESYLATE
     Dosage: UNK (GIVEN AT DOSES HIGHER THAN STANDARD RECOMMENDATIONS))
  5. DOXAZOSIN [Suspect]
     Active Substance: DOXAZOSIN MESYLATE
     Indication: Hypertension
     Dosage: UNK
  6. DOXAZOSIN [Suspect]
     Active Substance: DOXAZOSIN MESYLATE
     Dosage: UNK
     Route: 065
  7. DOXAZOSIN [Suspect]
     Active Substance: DOXAZOSIN MESYLATE
     Dosage: UNK
     Route: 065
  8. DOXAZOSIN [Suspect]
     Active Substance: DOXAZOSIN MESYLATE
     Dosage: UNK
  9. NIFEDIPINE [Suspect]
     Active Substance: NIFEDIPINE
     Indication: Hypertension
     Dosage: UNK
  10. NIFEDIPINE [Suspect]
     Active Substance: NIFEDIPINE
     Dosage: UNK
  11. NIFEDIPINE [Suspect]
     Active Substance: NIFEDIPINE
     Dosage: UNK
  12. NIFEDIPINE [Suspect]
     Active Substance: NIFEDIPINE
     Dosage: UNK
  13. NIFEDIPINE [Suspect]
     Active Substance: NIFEDIPINE
     Indication: Hypertension
     Dosage: UNK (GIVEN AT DOSES HIGHER THAN STANDARD RECOMMENDATION)
  14. NIFEDIPINE [Suspect]
     Active Substance: NIFEDIPINE
     Dosage: UNK (GIVEN AT DOSES HIGHER THAN STANDARD RECOMMENDATION)
     Route: 048
  15. NIFEDIPINE [Suspect]
     Active Substance: NIFEDIPINE
     Dosage: UNK (GIVEN AT DOSES HIGHER THAN STANDARD RECOMMENDATION)
     Route: 048
  16. NIFEDIPINE [Suspect]
     Active Substance: NIFEDIPINE
     Dosage: UNK (GIVEN AT DOSES HIGHER THAN STANDARD RECOMMENDATION)
  17. CLONIDINE [Suspect]
     Active Substance: CLONIDINE
     Indication: Hypertension
     Dosage: UNK (GIVEN AT DOSES HIGHER THAN STANDARD RECOMMENDATION)
  18. CLONIDINE [Suspect]
     Active Substance: CLONIDINE
     Dosage: UNK (GIVEN AT DOSES HIGHER THAN STANDARD RECOMMENDATION)
     Route: 048
  19. CLONIDINE [Suspect]
     Active Substance: CLONIDINE
     Dosage: UNK (GIVEN AT DOSES HIGHER THAN STANDARD RECOMMENDATION)
     Route: 048
  20. CLONIDINE [Suspect]
     Active Substance: CLONIDINE
     Dosage: UNK (GIVEN AT DOSES HIGHER THAN STANDARD RECOMMENDATION)
  21. LABETALOL [Suspect]
     Active Substance: LABETALOL
     Indication: Hypertension
     Dosage: UNK
  22. LABETALOL [Suspect]
     Active Substance: LABETALOL
     Dosage: UNK
     Route: 042
  23. LABETALOL [Suspect]
     Active Substance: LABETALOL
     Dosage: UNK
     Route: 042
  24. LABETALOL [Suspect]
     Active Substance: LABETALOL
     Dosage: UNK
  25. LABETALOL [Suspect]
     Active Substance: LABETALOL
     Indication: Hypertension
     Dosage: UNK (GIVEN AT DOSES HIGHER THAN STANDARD RECOMMENDATION)
  26. LABETALOL [Suspect]
     Active Substance: LABETALOL
     Dosage: UNK (GIVEN AT DOSES HIGHER THAN STANDARD RECOMMENDATION)
     Route: 048
  27. LABETALOL [Suspect]
     Active Substance: LABETALOL
     Dosage: UNK (GIVEN AT DOSES HIGHER THAN STANDARD RECOMMENDATION)
     Route: 048
  28. LABETALOL [Suspect]
     Active Substance: LABETALOL
     Dosage: UNK (GIVEN AT DOSES HIGHER THAN STANDARD RECOMMENDATION)
  29. HYDRALAZINE [Suspect]
     Active Substance: HYDRALAZINE HYDROCHLORIDE
     Indication: Hypertension
     Dosage: UNK
  30. HYDRALAZINE [Suspect]
     Active Substance: HYDRALAZINE HYDROCHLORIDE
     Dosage: UNK
     Route: 042
  31. HYDRALAZINE [Suspect]
     Active Substance: HYDRALAZINE HYDROCHLORIDE
     Dosage: UNK
     Route: 042
  32. HYDRALAZINE [Suspect]
     Active Substance: HYDRALAZINE HYDROCHLORIDE
     Dosage: UNK
  33. HYDRALAZINE [Suspect]
     Active Substance: HYDRALAZINE HYDROCHLORIDE
     Indication: Hypertension
     Dosage: UNK (GIVEN AT DOSES HIGHER THAN STANDAR RECOMMENDATIONS)
  34. HYDRALAZINE [Suspect]
     Active Substance: HYDRALAZINE HYDROCHLORIDE
     Dosage: UNK (GIVEN AT DOSES HIGHER THAN STANDAR RECOMMENDATIONS)
     Route: 048
  35. HYDRALAZINE [Suspect]
     Active Substance: HYDRALAZINE HYDROCHLORIDE
     Dosage: UNK (GIVEN AT DOSES HIGHER THAN STANDAR RECOMMENDATIONS)
     Route: 048
  36. HYDRALAZINE [Suspect]
     Active Substance: HYDRALAZINE HYDROCHLORIDE
     Dosage: UNK (GIVEN AT DOSES HIGHER THAN STANDAR RECOMMENDATIONS)
  37. ENALAPRIL [Suspect]
     Active Substance: ENALAPRIL
     Indication: Hypertension
     Dosage: UNK (GIVEN AT DOSES HIGHER THAN STANDAR RECOMMENDATIONS)
  38. ENALAPRIL [Suspect]
     Active Substance: ENALAPRIL
     Dosage: UNK (GIVEN AT DOSES HIGHER THAN STANDAR RECOMMENDATIONS)
     Route: 048
  39. ENALAPRIL [Suspect]
     Active Substance: ENALAPRIL
     Dosage: UNK (GIVEN AT DOSES HIGHER THAN STANDAR RECOMMENDATIONS)
     Route: 048
  40. ENALAPRIL [Suspect]
     Active Substance: ENALAPRIL
     Dosage: UNK (GIVEN AT DOSES HIGHER THAN STANDAR RECOMMENDATIONS)
  41. MINOXIDIL [Suspect]
     Active Substance: MINOXIDIL
     Indication: Hypertension
     Dosage: UNK
  42. MINOXIDIL [Suspect]
     Active Substance: MINOXIDIL
     Dosage: UNK
     Route: 065
  43. MINOXIDIL [Suspect]
     Active Substance: MINOXIDIL
     Dosage: UNK
     Route: 065
  44. MINOXIDIL [Suspect]
     Active Substance: MINOXIDIL
     Dosage: UNK
  45. NITROPRUSSIDE [Suspect]
     Active Substance: NITROPRUSSIDE
     Indication: Hypertension
     Dosage: UNK
  46. NITROPRUSSIDE [Suspect]
     Active Substance: NITROPRUSSIDE
     Dosage: UNK
     Route: 042
  47. NITROPRUSSIDE [Suspect]
     Active Substance: NITROPRUSSIDE
     Dosage: UNK
     Route: 042
  48. NITROPRUSSIDE [Suspect]
     Active Substance: NITROPRUSSIDE
     Dosage: UNK
  49. PHENTOLAMINE [Suspect]
     Active Substance: PHENTOLAMINE
     Indication: Hypertension
     Dosage: UNK
  50. PHENTOLAMINE [Suspect]
     Active Substance: PHENTOLAMINE
     Dosage: UNK
     Route: 042
  51. PHENTOLAMINE [Suspect]
     Active Substance: PHENTOLAMINE
     Dosage: UNK
     Route: 042
  52. PHENTOLAMINE [Suspect]
     Active Substance: PHENTOLAMINE
     Dosage: UNK
  53. NICARDIPINE [Suspect]
     Active Substance: NICARDIPINE
     Indication: Hypertension
     Dosage: UNK
  54. NICARDIPINE [Suspect]
     Active Substance: NICARDIPINE
     Dosage: UNK
     Route: 042
  55. NICARDIPINE [Suspect]
     Active Substance: NICARDIPINE
     Dosage: UNK
     Route: 042
  56. NICARDIPINE [Suspect]
     Active Substance: NICARDIPINE
     Dosage: UNK
  57. METHYLPREDNISOLONE [Concomitant]
     Active Substance: METHYLPREDNISOLONE
     Dosage: UNK
  58. METHYLPREDNISOLONE [Concomitant]
     Active Substance: METHYLPREDNISOLONE
     Dosage: UNK
     Route: 065
  59. METHYLPREDNISOLONE [Concomitant]
     Active Substance: METHYLPREDNISOLONE
     Dosage: UNK
     Route: 065
  60. METHYLPREDNISOLONE [Concomitant]
     Active Substance: METHYLPREDNISOLONE
     Dosage: UNK
  61. PREDNISOLONE [Concomitant]
     Active Substance: PREDNISOLONE
     Dosage: UNK
  62. PREDNISOLONE [Concomitant]
     Active Substance: PREDNISOLONE
     Dosage: UNK
     Route: 065
  63. PREDNISOLONE [Concomitant]
     Active Substance: PREDNISOLONE
     Dosage: UNK
     Route: 065
  64. PREDNISOLONE [Concomitant]
     Active Substance: PREDNISOLONE
     Dosage: UNK
  65. INFLIXIMAB [Concomitant]
     Active Substance: INFLIXIMAB
     Dosage: UNK
  66. INFLIXIMAB [Concomitant]
     Active Substance: INFLIXIMAB
     Dosage: UNK
     Route: 065
  67. INFLIXIMAB [Concomitant]
     Active Substance: INFLIXIMAB
     Dosage: UNK
     Route: 065
  68. INFLIXIMAB [Concomitant]
     Active Substance: INFLIXIMAB
     Dosage: UNK

REACTIONS (2)
  - Renal failure [Unknown]
  - Intentional product misuse [Unknown]
